FAERS Safety Report 20913891 (Version 1)
Quarter: 2022Q2

REPORT INFORMATION
  Report Type: Other
  Country: US (occurrence: None)
  Receive Date: 20220604
  Receipt Date: 20220604
  Transmission Date: 20220721
  Serious: Yes (Hospitalization, Other)
  Sender: FDA-Public Use
  Company Number: US-ROCHE-2856067

PATIENT
  Age: 77 Year
  Sex: Female

DRUGS (2)
  1. ALECENSA [Suspect]
     Active Substance: ALECTINIB HYDROCHLORIDE
     Indication: Lung neoplasm malignant
     Dosage: ONGOING UNKNOWN
     Route: 048
     Dates: start: 201712, end: 201902
  2. ALECENSA [Suspect]
     Active Substance: ALECTINIB HYDROCHLORIDE
     Route: 048

REACTIONS (8)
  - Thrombosis [Unknown]
  - Muscle injury [Unknown]
  - Peripheral nerve injury [Unknown]
  - Fall [Unknown]
  - Blood electrolytes decreased [Recovered/Resolved]
  - Blood sodium decreased [Unknown]
  - Mental disorder [Unknown]
  - Peripheral swelling [Unknown]

NARRATIVE: CASE EVENT DATE: 20190225
